FAERS Safety Report 12410186 (Version 1)
Quarter: 2016Q2

REPORT INFORMATION
  Report Type: Spontaneous
  Country: FR (occurrence: FR)
  Receive Date: 20160527
  Receipt Date: 20160527
  Transmission Date: 20160815
  Serious: Yes (Other)
  Sender: FDA-Public Use
  Company Number: FR-ROCHE-1712179

PATIENT
  Age: 79 Year
  Sex: Male
  Weight: 78 kg

DRUGS (10)
  1. KARDEGIC [Concomitant]
     Active Substance: ASPIRIN LYSINE
  2. JANUVIA [Concomitant]
     Active Substance: SITAGLIPTIN PHOSPHATE
  3. FUROSEMIDE. [Concomitant]
     Active Substance: FUROSEMIDE
  4. DIFFU K [Concomitant]
     Active Substance: POTASSIUM CHLORIDE
  5. ZOFENIL [Concomitant]
     Active Substance: ZOFENOPRIL
  6. SPIRIVA [Concomitant]
     Active Substance: TIOTROPIUM BROMIDE MONOHYDRATE
  7. NEBIVOLOL. [Concomitant]
     Active Substance: NEBIVOLOL
  8. LEXOMIL [Concomitant]
     Active Substance: BROMAZEPAM
  9. ESBRIET [Suspect]
     Active Substance: PIRFENIDONE
     Indication: IDIOPATHIC PULMONARY FIBROSIS
     Route: 048
     Dates: start: 20160118, end: 20160229
  10. HEMIGOXINE [Concomitant]
     Active Substance: DIGOXIN

REACTIONS (2)
  - Hepatitis [Recovered/Resolved]
  - Weight decreased [Not Recovered/Not Resolved]

NARRATIVE: CASE EVENT DATE: 20160229
